FAERS Safety Report 8614991-6 (Version None)
Quarter: 2012Q3

REPORT INFORMATION
  Report Type: 
  Country: None (occurrence: None)
  Receive Date: 20120823
  Receipt Date: 20120817
  Transmission Date: 20120928
  Serious: Yes (Death, Other)
  Sender: FDA-Public Use
  Company Number: JP-PFIZER INC-2012183269

PATIENT
  Age: 72 Year
  Sex: Female

DRUGS (2)
  1. XALKORI [Suspect]
     Dosage: 250 MG, 2X/DAY
     Route: 048
     Dates: start: 20120710, end: 20120723
  2. XALKORI [Suspect]
     Indication: LUNG NEOPLASM MALIGNANT
     Dosage: 250 MG, 2X/DAY
     Route: 048
     Dates: start: 20120704, end: 20120707

REACTIONS (3)
  - LUNG NEOPLASM MALIGNANT [None]
  - INTERSTITIAL LUNG DISEASE [None]
  - DISEASE PROGRESSION [None]
